FAERS Safety Report 22104504 (Version 1)
Quarter: 2023Q1

REPORT INFORMATION
  Report Type: Spontaneous
  Country: PL (occurrence: PL)
  Receive Date: 20230316
  Receipt Date: 20230316
  Transmission Date: 20230418
  Serious: Yes (Death, Life-Threatening, Hospitalization, Other)
  Sender: FDA-Public Use
  Company Number: PL-009507513-2303POL005004

PATIENT
  Sex: Female
  Weight: 69.7 kg

DRUGS (6)
  1. PEMBROLIZUMAB [Suspect]
     Active Substance: PEMBROLIZUMAB
     Indication: Bladder transitional cell carcinoma
     Dosage: UNK, EVERY 6 WEEKS
     Route: 042
     Dates: start: 20220607, end: 20220909
  2. PEMBROLIZUMAB [Suspect]
     Active Substance: PEMBROLIZUMAB
     Dosage: UNK, EVERY 6 WEEKS
     Route: 042
     Dates: end: 20221010
  3. BCG LIVE [Suspect]
     Active Substance: BACILLUS CALMETTE-GUERIN SUBSTRAIN TICE LIVE ANTIGEN
     Indication: Bladder transitional cell carcinoma
     Dosage: 50 MILLIGRAM, QW
     Route: 043
     Dates: start: 20220608, end: 20220916
  4. ACCUPRO [Concomitant]
     Active Substance: QUINAPRIL HYDROCHLORIDE
     Indication: Hypertension
     Dosage: UNK
     Dates: start: 201701
  5. INDAPAMIDE [Concomitant]
     Active Substance: INDAPAMIDE
     Indication: Hypertension
     Dosage: UNK
     Dates: start: 201701
  6. BISOPROLOL [Concomitant]
     Active Substance: BISOPROLOL
     Indication: Hypertension
     Dosage: UNK
     Dates: start: 201701

REACTIONS (10)
  - Autoimmune hepatitis [Fatal]
  - Peripheral swelling [Not Recovered/Not Resolved]
  - Abdominal distension [Not Recovered/Not Resolved]
  - Ascites [Recovered/Resolved with Sequelae]
  - Electrolyte imbalance [Recovering/Resolving]
  - Blindness [Not Recovered/Not Resolved]
  - Autoimmune disorder [Unknown]
  - Hypertension [Recovered/Resolved with Sequelae]
  - Hypothyroidism [Recovering/Resolving]
  - Dyspnoea [Recovered/Resolved with Sequelae]

NARRATIVE: CASE EVENT DATE: 20220101
